FAERS Safety Report 11631133 (Version 1)
Quarter: 2015Q4

REPORT INFORMATION
  Report Type: Report from Study
  Country: US (occurrence: US)
  Receive Date: 20151014
  Receipt Date: 20151014
  Transmission Date: 20160304
  Serious: No
  Sender: FDA-Public Use
  Company Number: PHEH2015US020456

PATIENT
  Sex: Female

DRUGS (1)
  1. TOBI [Suspect]
     Active Substance: TOBRAMYCIN
     Indication: PRIMARY CILIARY DYSKINESIA
     Dosage: 3 ML, (TWICE A DAY EVERYDAY EVERY OTHER MONTH)
     Route: 055

REACTIONS (1)
  - Primary ciliary dyskinesia [Unknown]
